FAERS Safety Report 25025571 (Version 2)
Quarter: 2025Q1

REPORT INFORMATION
  Report Type: Spontaneous
  Country: IT (occurrence: IT)
  Receive Date: 20250228
  Receipt Date: 20250317
  Transmission Date: 20250409
  Serious: Yes (Other)
  Sender: NOVO NORDISK
  Company Number: IT-NOVOPROD-1322925

PATIENT
  Weight: 2.136 kg

DRUGS (2)
  1. SEMAGLUTIDE [Suspect]
     Active Substance: SEMAGLUTIDE
     Route: 064
     Dates: end: 20220103
  2. SEMAGLUTIDE [Suspect]
     Active Substance: SEMAGLUTIDE
     Indication: Type 1 diabetes mellitus
     Dosage: 0.25 MG, QW
     Route: 064
     Dates: start: 20200824

REACTIONS (3)
  - XXX syndrome [Unknown]
  - Hypoglycaemia neonatal [Unknown]
  - Foetal exposure during pregnancy [Unknown]
